FAERS Safety Report 7749914-5 (Version None)
Quarter: 2011Q3

REPORT INFORMATION
  Report Type: 
  Country: None (occurrence: None)
  Receive Date: 20110907
  Receipt Date: 20110824
  Transmission Date: 20111222
  Serious: Yes (Other)
  Sender: FDA-Public Use
  Company Number: DSA_47529_2011

PATIENT
  Age: 60 Year
  Sex: Female

DRUGS (3)
  1. PROVIGIL [Suspect]
     Indication: PRODUCT USED FOR UNKNOWN INDICATION
     Dosage: (DF ORAL)
     Route: 048
     Dates: start: 20090601, end: 20110101
  2. CYMBALTA [Suspect]
     Indication: PRODUCT USED FOR UNKNOWN INDICATION
     Dosage: (DF)
     Dates: start: 20090101, end: 20110101
  3. WELLBUTRIN XL [Suspect]
     Indication: PRODUCT USED FOR UNKNOWN INDICATION
     Dosage: (DF ORAL)
     Route: 048
     Dates: start: 20090101, end: 20110101

REACTIONS (9)
  - MALNUTRITION [None]
  - HYPOTHYROIDISM [None]
  - LIMB INJURY [None]
  - IMPAIRED HEALING [None]
  - FALL [None]
  - ULCER [None]
  - OEDEMA PERIPHERAL [None]
  - DRY SKIN [None]
  - PRURITUS [None]
